FAERS Safety Report 7811461-X (Version None)
Quarter: 2011Q4

REPORT INFORMATION
  Report Type: 
  Country: None (occurrence: None)
  Receive Date: 20111013
  Receipt Date: 20111012
  Transmission Date: 20120403
  Serious: Yes (Other)
  Sender: FDA-Public Use
  Company Number: CA-PFIZER INC-2011195102

PATIENT
  Sex: Female

DRUGS (10)
  1. XALATAN [Suspect]
     Dosage: 1 GTT DAILY IN EACH EYE AT BEDTIME
  2. AVAMYS [Concomitant]
     Dosage: 2 SPRAYS PER DAY
     Dates: start: 20110301
  3. XALATAN [Suspect]
     Indication: GLAUCOMA
     Dosage: 1 GTT DAILY
     Route: 047
  4. CITALOPRAM [Concomitant]
     Dosage: 20 MG, 1X/DAY
     Dates: start: 20010101
  5. MAGNESIUM GLYCINATE [Concomitant]
     Dosage: 200 UG, 1X/DAY AT BEDTIME
     Dates: start: 20050101
  6. CALCIUM PLUS [Concomitant]
     Dosage: 500MCG, 125IU 1X/DAY
     Dates: start: 20110501
  7. PRADAXA [Concomitant]
     Dosage: 110 UG, 2X/DAY
     Dates: start: 20110501
  8. VITAMIN B COMPLEX CAP [Concomitant]
     Dosage: 200 UG, 1X/DAY
     Dates: start: 20050101
  9. COLLAGEN [Concomitant]
     Dosage: UNK
  10. SPIRIVA [Concomitant]
     Dosage: UNK
     Dates: start: 20110301

REACTIONS (5)
  - GLAUCOMA [None]
  - EYE PRURITUS [None]
  - MEMORY IMPAIRMENT [None]
  - EYE IRRITATION [None]
  - VISUAL IMPAIRMENT [None]
